FAERS Safety Report 4439948-0 (Version None)
Quarter: 2004Q3

REPORT INFORMATION
  Report Type: 
  Country: None (occurrence: None)
  Receive Date: 20040902
  Receipt Date: 20040826
  Transmission Date: 20050211
  Serious: Yes (Other)
  Sender: FDA-Public Use
  Company Number: AU-JNJFOC-20040810137

PATIENT
  Age: 31 Year
  Sex: Male

DRUGS (4)
  1. RISPERDAL [Suspect]
     Indication: SCHIZOPHRENIA
     Route: 049
  2. OLANZAPINE [Suspect]
     Indication: SCHIZOPHRENIA
     Route: 049
  3. CLOZAPINE [Suspect]
     Indication: SCHIZOPHRENIA
     Route: 049
  4. CLOZAPINE [Suspect]
     Indication: DRUG USE FOR UNKNOWN INDICATION
     Route: 049

REACTIONS (3)
  - DRUG INTERACTION [None]
  - PERICARDITIS [None]
  - TACHYPNOEA [None]
